FAERS Safety Report 23141363 (Version 1)
Quarter: 2023Q4

REPORT INFORMATION
  Report Type: Spontaneous
  Country: CA (occurrence: CA)
  Receive Date: 20231103
  Receipt Date: 20231103
  Transmission Date: 20240110
  Serious: Yes (Other)
  Sender: FDA-Public Use
  Company Number: CA-GLAXOSMITHKLINE-CA2023AMR150156

PATIENT

DRUGS (1)
  1. BENLYSTA [Suspect]
     Active Substance: BELIMUMAB
     Indication: Systemic lupus erythematosus
     Dosage: UNK

REACTIONS (6)
  - Renal impairment [Unknown]
  - Cellulitis [Unknown]
  - Hypertension [Unknown]
  - Rash [Recovering/Resolving]
  - Oedema peripheral [Unknown]
  - Discomfort [Unknown]

NARRATIVE: CASE EVENT DATE: 20231026
